FAERS Safety Report 11806829 (Version 1)
Quarter: 2015Q4

REPORT INFORMATION
  Report Type: Spontaneous
  Country: BR (occurrence: BR)
  Receive Date: 20151207
  Receipt Date: 20151207
  Transmission Date: 20160305
  Serious: Yes (Life-Threatening, Other)
  Sender: FDA-Public Use
  Company Number: BR-JNJFOC-20151202241

PATIENT

DRUGS (1)
  1. LEVAQUIN [Suspect]
     Active Substance: LEVOFLOXACIN
     Indication: PRODUCT USED FOR UNKNOWN INDICATION
     Route: 065

REACTIONS (26)
  - Amnesia [Unknown]
  - Psychotic disorder [Unknown]
  - Tendon rupture [Unknown]
  - Rash [Unknown]
  - Abdominal pain [Unknown]
  - Somnolence [Unknown]
  - Neuralgia [Unknown]
  - Dyspnoea [Unknown]
  - Palpitations [Unknown]
  - Temperature intolerance [Unknown]
  - Hypoaesthesia [Unknown]
  - Malaise [Unknown]
  - Joint swelling [Unknown]
  - Tachycardia [Unknown]
  - Alopecia [Unknown]
  - Panic disorder [Unknown]
  - Tendonitis [Unknown]
  - Nausea [Unknown]
  - Asthenia [Unknown]
  - Dizziness [Unknown]
  - Vomiting [Unknown]
  - Headache [Unknown]
  - Anxiety [Unknown]
  - Chest pain [Unknown]
  - Hyperhidrosis [Unknown]
  - Diarrhoea [Unknown]

NARRATIVE: CASE EVENT DATE: 2001
